FAERS Safety Report 23800398 (Version 1)
Quarter: 2024Q2

REPORT INFORMATION
  Report Type: Report from Study
  Country: BR (occurrence: BR)
  Receive Date: 20240430
  Receipt Date: 20240430
  Transmission Date: 20240716
  Serious: Yes (Other)
  Sender: FDA-Public Use
  Company Number: BR-UCBSA-2024020677

PATIENT
  Age: 50 Year
  Sex: Female
  Weight: 81 kg

DRUGS (5)
  1. CERTOLIZUMAB PEGOL [Suspect]
     Active Substance: CERTOLIZUMAB PEGOL
     Indication: Rheumatoid arthritis
     Dosage: 400 MILLIGRAM, MONTHLY (QM)
     Route: 058
     Dates: start: 202308, end: 2023
  2. TACROLIMUS [Concomitant]
     Active Substance: TACROLIMUS
     Indication: Transplant
     Dosage: UNK UNK, 3X/DAY (TID)
     Route: 048
     Dates: start: 2009
  3. MYCOPHENOLATE SODIUM [Concomitant]
     Active Substance: MYCOPHENOLATE SODIUM
     Indication: Transplant
     Dosage: UNK, 2X/DAY (BID)
     Route: 048
     Dates: start: 2009
  4. CORUS [SACCHARATED IRON OXIDE] [Concomitant]
     Indication: Transplant
     Dosage: 25 MILLIGRAM, 2X/DAY (BID)
     Route: 048
     Dates: start: 2009
  5. PREDNISOLONE [Concomitant]
     Active Substance: PREDNISOLONE
     Indication: Transplant
     Dosage: 5 MILLIGRAM, ONCE DAILY (QD)
     Route: 048
     Dates: start: 2009

REACTIONS (2)
  - Liver transplant rejection [Unknown]
  - Liver transplant [Recovered/Resolved]

NARRATIVE: CASE EVENT DATE: 20230801
